FAERS Safety Report 11247136 (Version 2)
Quarter: 2015Q3

REPORT INFORMATION
  Report Type: Spontaneous
  Country: US (occurrence: US)
  Receive Date: 20150708
  Receipt Date: 20150714
  Transmission Date: 20151125
  Serious: No
  Sender: FDA-Public Use
  Company Number: US-PFIZER INC-2015226809

PATIENT
  Age: 56 Year
  Sex: Female
  Weight: 54 kg

DRUGS (2)
  1. SYNTHROID [Suspect]
     Active Substance: LEVOTHYROXINE SODIUM
     Indication: BASEDOW^S DISEASE
     Dosage: 75 ?G, 1X/DAY
     Route: 048
     Dates: start: 2011
  2. CYTOMEL [Suspect]
     Active Substance: LIOTHYRONINE SODIUM
     Indication: BASEDOW^S DISEASE
     Dosage: 5 ?G, 1X/DAY
     Route: 048
     Dates: start: 2015

REACTIONS (3)
  - Heart rate irregular [Not Recovered/Not Resolved]
  - Intentional product misuse [Unknown]
  - Drug intolerance [Unknown]

NARRATIVE: CASE EVENT DATE: 2015
